FAERS Safety Report 6762110-3 (Version None)
Quarter: 2010Q2

REPORT INFORMATION
  Report Type: 
  Country: None (occurrence: None)
  Receive Date: 20100609
  Receipt Date: 20100507
  Transmission Date: 20101027
  Serious: No
  Sender: FDA-Public Use
  Company Number: US-TYCO HEALTHCARE/MALLINCKRODT-T201001216

PATIENT

DRUGS (1)
  1. EXALGO [Suspect]
     Indication: NECK PAIN
     Dosage: 8 MG, QD
     Dates: start: 20100101, end: 20100101

REACTIONS (4)
  - HEADACHE [None]
  - HEART RATE INCREASED [None]
  - NAUSEA [None]
  - PALPITATIONS [None]
